FAERS Safety Report 16013771 (Version 2)
Quarter: 2019Q1

REPORT INFORMATION
  Report Type: Spontaneous
  Country: BE (occurrence: BE)
  Receive Date: 20190227
  Receipt Date: 20190227
  Transmission Date: 20190418
  Serious: Yes (Other)
  Sender: FDA-Public Use
  Company Number: PHHY2019BE010955

PATIENT
  Age: 52 Year
  Sex: Male

DRUGS (19)
  1. VELCADE [Suspect]
     Active Substance: BORTEZOMIB
     Indication: HYPERGAMMAGLOBULINAEMIA BENIGN MONOCLONAL
  2. DEXAMETHASONE. [Suspect]
     Active Substance: DEXAMETHASONE
     Indication: HYPERGAMMAGLOBULINAEMIA BENIGN MONOCLONAL
  3. ATORVASTATINE [Concomitant]
     Active Substance: ATORVASTATIN
     Indication: DYSLIPIDAEMIA
     Dosage: 40 MG, QD
     Route: 065
  4. MONTELUKAST SODIUM. [Suspect]
     Active Substance: MONTELUKAST SODIUM
     Indication: CAPILLARY LEAK SYNDROME
     Dosage: 10 MG, UNK
     Route: 065
  5. RANITIDINE HYDROCHLORIDE. [Suspect]
     Active Substance: RANITIDINE HYDROCHLORIDE
     Indication: CAPILLARY LEAK SYNDROME
     Dosage: 300 MG, UNK
     Route: 065
  6. XANTHIUM (THEOPHYLLINE) [Suspect]
     Active Substance: THEOPHYLLINE
     Indication: HYPERGAMMAGLOBULINAEMIA BENIGN MONOCLONAL
  7. RAMIPRIL. [Concomitant]
     Active Substance: RAMIPRIL
     Indication: HYPERTENSION
     Dosage: 10 MG, QD
     Route: 065
  8. CHOLECALCIFEROL [Concomitant]
     Active Substance: CHOLECALCIFEROL
     Indication: VITAMIN D DEFICIENCY
     Dosage: 25000 IU, QW
     Route: 065
  9. RANITIDINE HYDROCHLORIDE. [Suspect]
     Active Substance: RANITIDINE HYDROCHLORIDE
     Indication: HYPERGAMMAGLOBULINAEMIA BENIGN MONOCLONAL
  10. CYCLOPHOSPHAMIDE. [Suspect]
     Active Substance: CYCLOPHOSPHAMIDE
     Indication: HYPERGAMMAGLOBULINAEMIA BENIGN MONOCLONAL
  11. XANTHIUM (THEOPHYLLINE) [Suspect]
     Active Substance: THEOPHYLLINE
     Indication: CAPILLARY LEAK SYNDROME
     Dosage: 400 MG, UNK
     Route: 065
  12. MULTIGAM [Concomitant]
     Active Substance: HUMAN IMMUNOGLOBULIN G
     Indication: HYPERGAMMAGLOBULINAEMIA BENIGN MONOCLONAL
  13. CETIRIZINE [Suspect]
     Active Substance: CETIRIZINE HYDROCHLORIDE
     Indication: HYPERGAMMAGLOBULINAEMIA BENIGN MONOCLONAL
  14. DEXAMETHASONE. [Suspect]
     Active Substance: DEXAMETHASONE
     Indication: CAPILLARY LEAK SYNDROME
     Route: 065
  15. MULTIGAM [Concomitant]
     Active Substance: HUMAN IMMUNOGLOBULIN G
     Indication: CAPILLARY LEAK SYNDROME
     Route: 042
  16. MONTELUKAST SODIUM. [Suspect]
     Active Substance: MONTELUKAST SODIUM
     Indication: HYPERGAMMAGLOBULINAEMIA BENIGN MONOCLONAL
  17. CETIRIZINE [Suspect]
     Active Substance: CETIRIZINE HYDROCHLORIDE
     Indication: CAPILLARY LEAK SYNDROME
     Dosage: 10 MG, UNK
     Route: 065
  18. CYCLOPHOSPHAMIDE. [Suspect]
     Active Substance: CYCLOPHOSPHAMIDE
     Indication: CAPILLARY LEAK SYNDROME
     Route: 065
  19. VELCADE [Suspect]
     Active Substance: BORTEZOMIB
     Indication: CAPILLARY LEAK SYNDROME
     Dosage: LYOPHILIZED POWDER, FOR 5 CYCLES
     Route: 065

REACTIONS (7)
  - Polyneuropathy [Recovering/Resolving]
  - Vision blurred [Recovering/Resolving]
  - Diabetes mellitus [Recovering/Resolving]
  - Pain [Unknown]
  - Off label use [Unknown]
  - Fatigue [Recovering/Resolving]
  - Drug ineffective for unapproved indication [Unknown]
